FAERS Safety Report 24588727 (Version 1)
Quarter: 2024Q4

REPORT INFORMATION
  Report Type: Spontaneous
  Country: CA (occurrence: CA)
  Receive Date: 20241107
  Receipt Date: 20241107
  Transmission Date: 20250115
  Serious: Yes (Other)
  Sender: STASON PHARMACEUTICALS, INC.
  Company Number: CA-Stason Pharmaceuticals, Inc.-2164625

PATIENT
  Age: 3 Year
  Sex: Male

DRUGS (1)
  1. MERCAPTOPURINE [Suspect]
     Active Substance: MERCAPTOPURINE

REACTIONS (2)
  - Neutropenia [Unknown]
  - Pyrexia [Unknown]
